FAERS Safety Report 16792708 (Version 2)
Quarter: 2019Q3

REPORT INFORMATION
  Report Type: Spontaneous
  Country: JP (occurrence: JP)
  Receive Date: 20190910
  Receipt Date: 20190910
  Transmission Date: 20191005
  Serious: Yes (Other)
  Sender: FDA-Public Use
  Company Number: GXJP2019JP001584

PATIENT
  Age: 64 Year
  Sex: Male
  Weight: 51.3 kg

DRUGS (17)
  1. VINCRISTINE [Suspect]
     Active Substance: VINCRISTINE
     Indication: T-CELL LYMPHOMA STAGE IV
     Dosage: 0.4 MG/M2, QD (FROM DAY 1 TO 4)
     Route: 042
  2. ALOGLIPTIN BENZOATE [Concomitant]
     Active Substance: ALOGLIPTIN BENZOATE
     Indication: PRODUCT USED FOR UNKNOWN INDICATION
     Dosage: 25 MG, QD
     Route: 065
  3. VANCOMYCIN [Suspect]
     Active Substance: VANCOMYCIN
     Dosage: 1.3 G, Q8H
     Route: 065
  4. PYRIDOXAL PHOSPHATE [Concomitant]
     Active Substance: PYRIDOXAL PHOSPHATE
     Indication: PRODUCT USED FOR UNKNOWN INDICATION
     Dosage: 10 MG, TID
     Route: 065
  5. ETOPOSIDE. [Suspect]
     Active Substance: ETOPOSIDE
     Indication: T-CELL LYMPHOMA STAGE IV
     Dosage: 50 MG/M2, QD
     Route: 041
  6. PREDNISOLONE. [Suspect]
     Active Substance: PREDNISOLONE
     Dosage: 60 MG/M2, QD (FROM DAY 1 TO 5)
     Route: 048
  7. VANCOMYCIN [Suspect]
     Active Substance: VANCOMYCIN
     Dosage: 0.75 G, Q8H
     Route: 065
  8. VANCOMYCIN [Suspect]
     Active Substance: VANCOMYCIN
     Dosage: 1.0 G, Q6H
     Route: 065
  9. PREDNISOLONE. [Suspect]
     Active Substance: PREDNISOLONE
     Indication: T-CELL LYMPHOMA STAGE IV
     Dosage: 100 MG, QD (FROM DAY 1 TO 5)
     Route: 048
  10. DIFLORASONE DIACETATE. [Concomitant]
     Active Substance: DIFLORASONE DIACETATE
     Indication: PRODUCT USED FOR UNKNOWN INDICATION
     Dosage: UNK UNK, BID
     Route: 061
  11. VANCOMYCIN [Suspect]
     Active Substance: VANCOMYCIN
     Indication: T-CELL LYMPHOMA STAGE IV
     Dosage: 1.0 G, Q12H
     Route: 065
  12. VANCOMYCIN [Suspect]
     Active Substance: VANCOMYCIN
     Dosage: 1.0 G, Q8H
     Route: 065
  13. VINCRISTINE [Suspect]
     Active Substance: VINCRISTINE
     Dosage: 1.4 MG/M2, UNK
     Route: 042
  14. FLAVINE ADENINE DINUCLEOTIDE DISODIUM [Concomitant]
     Indication: PRODUCT USED FOR UNKNOWN INDICATION
     Dosage: 5 MG, BID
     Route: 065
  15. MAXACALCITOL [Concomitant]
     Active Substance: MAXACALCITOL
     Indication: PRODUCT USED FOR UNKNOWN INDICATION
     Dosage: UNK, BID
     Route: 061
  16. DOXORUBICIN [Suspect]
     Active Substance: DOXORUBICIN
     Indication: T-CELL LYMPHOMA STAGE IV
     Dosage: 10 MG/M2, QD (FROM DAY 1 TO 4)
     Route: 041
  17. CYCLOPHOSPHAMIDE. [Suspect]
     Active Substance: CYCLOPHOSPHAMIDE
     Indication: T-CELL LYMPHOMA STAGE IV
     Dosage: 750 MG/M2, OVER 120 MINUTES ON DAY 5
     Route: 042

REACTIONS (6)
  - Febrile neutropenia [Unknown]
  - Body temperature increased [Recovered/Resolved]
  - C-reactive protein increased [Unknown]
  - Drug level fluctuating [Unknown]
  - White blood cell count decreased [Unknown]
  - Creatinine renal clearance increased [Unknown]
